FAERS Safety Report 6248077-5 (Version None)
Quarter: 2009Q2

REPORT INFORMATION
  Report Type: 
  Country: None (occurrence: None)
  Receive Date: 20090628
  Receipt Date: 20090616
  Transmission Date: 20091009
  Serious: No
  Sender: FDA-Public Use
  Company Number: US-ELI_LILLY_AND_COMPANY-US200904001389

PATIENT
  Sex: Male
  Weight: 90.703 kg

DRUGS (1)
  1. ZYPREXA [Suspect]

REACTIONS (8)
  - ANXIETY [None]
  - DEPRESSION [None]
  - DIABETES MELLITUS [None]
  - EMOTIONAL DISTRESS [None]
  - FATIGUE [None]
  - HYPERTENSION [None]
  - MULTIPLE INJURIES [None]
  - WEIGHT INCREASED [None]
